FAERS Safety Report 8004482-8 (Version None)
Quarter: 2011Q4

REPORT INFORMATION
  Report Type: 
  Country: None (occurrence: None)
  Receive Date: 20111221
  Receipt Date: 20111221
  Transmission Date: 20120403
  Serious: Yes (Hospitalization)
  Sender: FDA-Public Use
  Company Number: None

PATIENT
  Sex: Male
  Weight: 80.6 kg

DRUGS (2)
  1. ETOPOSIDE [Suspect]
     Dosage: 597 MG
  2. CISPLATIN [Suspect]
     Dosage: 159 MG

REACTIONS (5)
  - PYREXIA [None]
  - NEUTROPHIL COUNT ABNORMAL [None]
  - PULMONARY EMBOLISM [None]
  - ATRIAL FLUTTER [None]
  - WHITE BLOOD CELL COUNT ABNORMAL [None]
